FAERS Safety Report 9359966 (Version 1)
Quarter: 2013Q2

REPORT INFORMATION
  Report Type: Spontaneous
  Country: US (occurrence: None)
  Receive Date: 20130608
  Receipt Date: 20130608
  Transmission Date: 20140414
  Serious: No
  Sender: FDA-Public Use
  Company Number: 2013CT000035

PATIENT
  Age: 65 Year
  Sex: Female

DRUGS (1)
  1. KORLYM [Suspect]
     Indication: CUSHING^S SYNDROME
     Route: 048
     Dates: start: 201304, end: 20130508

REACTIONS (4)
  - Dysstasia [None]
  - Blood pressure increased [None]
  - Dizziness [None]
  - Nausea [None]
